FAERS Safety Report 24926457 (Version 1)
Quarter: 2025Q1

REPORT INFORMATION
  Report Type: Spontaneous
  Country: CN (occurrence: CN)
  Receive Date: 20250205
  Receipt Date: 20250205
  Transmission Date: 20250408
  Serious: Yes (Hospitalization)
  Sender: JIANGSU HENGRUI PHARMACEUTICALS CO., LTD.
  Company Number: CN-JIANGSU HENGRUI PHARMACEUTICALS CO., LTD.-H2025202444

PATIENT
  Age: 65 Year

DRUGS (6)
  1. OXALIPLATIN [Suspect]
     Active Substance: OXALIPLATIN
     Indication: Rectal neoplasm
  2. OXALIPLATIN [Suspect]
     Active Substance: OXALIPLATIN
  3. CAMRELIZUMAB [Suspect]
     Active Substance: CAMRELIZUMAB
     Indication: Rectal neoplasm
  4. CAMRELIZUMAB [Suspect]
     Active Substance: CAMRELIZUMAB
  5. CAPECITABINE [Suspect]
     Active Substance: CAPECITABINE
     Indication: Rectal neoplasm
  6. CAPECITABINE [Suspect]
     Active Substance: CAPECITABINE

REACTIONS (1)
  - Dermatitis [Recovering/Resolving]
